FAERS Safety Report 5891409-8 (Version None)
Quarter: 2008Q3

REPORT INFORMATION
  Report Type: 
  Country: None (occurrence: None)
  Receive Date: 20080922
  Receipt Date: 20080912
  Transmission Date: 20090109
  Serious: Yes (Hospitalization)
  Sender: FDA-Public Use
  Company Number: FR-MERCK-0808FRA00003

PATIENT
  Age: 59 Year
  Sex: Male

DRUGS (12)
  1. PRIMAXIN [Suspect]
     Indication: SEPSIS
     Route: 042
     Dates: start: 20080707, end: 20080719
  2. PRIMAXIN [Suspect]
     Route: 042
     Dates: start: 20080701, end: 20080706
  3. ESOMEPRAZOLE MAGNESIUM [Suspect]
     Route: 042
     Dates: start: 20080701, end: 20080706
  4. METOCLOPRAMIDE HYDROCHLORIDE [Concomitant]
     Route: 051
  5. PHYTONADIONE [Concomitant]
     Route: 051
  6. RECOMBIVAX HB [Concomitant]
     Indication: PROPHYLAXIS
     Route: 030
     Dates: start: 20080702
  7. CIPROFLOXACIN [Concomitant]
     Route: 042
  8. DOBUTAMINE [Concomitant]
     Route: 065
  9. INSULIN, NEUTRAL [Concomitant]
     Route: 051
  10. ONDANSETRON HYDROCHLORIDE [Concomitant]
     Route: 065
  11. LINEZOLID [Concomitant]
     Route: 065
  12. CANCIDAS [Concomitant]
     Route: 065

REACTIONS (2)
  - CHOLESTASIS [None]
  - JAUNDICE [None]
